FAERS Safety Report 8440980 (Version 2)
Quarter: 2012Q4

REPORT INFORMATION
  Report Type: 
  Country: US (occurrence: US)
  Receive Date: 20120305
  Receipt Date: 20121026
  Transmission Date: 20130627
  Serious: Yes (Hospitalization, Other)
  Sender: FDA-Public Use
  Company Number: US-ELI_LILLY_AND_COMPANY-US200910007691

PATIENT
  Age: 39 Year
  Sex: Male

DRUGS (11)
  1. ZYPREXA [Suspect]
     Indication: DELUSIONAL DISORDER, PERSECUTORY TYPE
     Dosage: 5 mg, qd
     Dates: start: 19980205, end: 20010905
  2. ZYPREXA [Suspect]
     Dosage: 10 mg, qd
     Dates: start: 20031230, end: 200611
  3. ZYPREXA [Suspect]
     Dosage: 10 mg, each evening
  4. IMIPRAMINE [Concomitant]
  5. DEPAKOTE [Concomitant]
  6. GEODON [Concomitant]
  7. SEROQUEL [Concomitant]
  8. PAXIL [Concomitant]
  9. ATIVAN [Concomitant]
  10. CITALOPRAM [Concomitant]
  11. CLONAZEPAM [Concomitant]

REACTIONS (32)
  - Osteomyelitis [Unknown]
  - Osteomyelitis [Unknown]
  - Cellulitis [Unknown]
  - Cellulitis [Unknown]
  - Endophthalmitis [Unknown]
  - Intervertebral discitis [Unknown]
  - Eye infection bacterial [Unknown]
  - Nasopharyngitis [Unknown]
  - Hypertriglyceridaemia [Recovering/Resolving]
  - Wound infection staphylococcal [Unknown]
  - Cataract [Unknown]
  - Glaucoma [Unknown]
  - Blepharitis [Unknown]
  - Tooth abscess [Unknown]
  - Skin candida [Unknown]
  - Sialoadenitis [Unknown]
  - Dental caries [Recovered/Resolved]
  - Restless legs syndrome [Unknown]
  - Skin ulcer [Recovering/Resolving]
  - Erythema [Unknown]
  - Blood glucose decreased [Unknown]
  - Nerve root injury lumbar [Unknown]
  - Sexual dysfunction [Unknown]
  - Chest pain [Recovered/Resolved]
  - Amblyopia [Unknown]
  - Alanine aminotransferase increased [Recovered/Resolved]
  - Weight increased [Recovered/Resolved]
  - Type 2 diabetes mellitus [Recovering/Resolving]
  - Hypercholesterolaemia [Recovering/Resolving]
  - Hypertension [Unknown]
  - Gastrooesophageal reflux disease [Unknown]
  - Drug dose omission [Unknown]
